FAERS Safety Report 4781115-5 (Version None)
Quarter: 2005Q3

REPORT INFORMATION
  Report Type: 
  Country: None (occurrence: None)
  Receive Date: 20050928
  Receipt Date: 20050916
  Transmission Date: 20060218
  Serious: Yes (Disabling)
  Sender: FDA-Public Use
  Company Number: US-KINGPHARMUSA00001-K200501224

PATIENT

DRUGS (5)
  1. ALTACE [Suspect]
     Indication: LEFT VENTRICULAR FAILURE
     Dosage: 5 MG, QD
     Route: 048
     Dates: start: 20050816, end: 20050820
  2. ASPIRIN [Concomitant]
     Indication: MYOCARDIAL ISCHAEMIA
     Dosage: 75 MG, QD
     Route: 048
     Dates: start: 20050401
  3. FUROSEMIDE [Concomitant]
     Indication: LEFT VENTRICULAR FAILURE
     Dosage: 40 MG, QD
     Route: 048
     Dates: start: 20050818
  4. ATENOLOL [Concomitant]
     Dosage: 25 MG, QD
     Route: 048
     Dates: start: 20050722
  5. PARACETAMOL [Concomitant]
     Dosage: UNK, PRN
     Route: 048

REACTIONS (2)
  - FEAR [None]
  - NIGHTMARE [None]
